FAERS Safety Report 14859029 (Version 4)
Quarter: 2021Q3

REPORT INFORMATION
  Report Type: Spontaneous
  Country: US (occurrence: US)
  Receive Date: 20180508
  Receipt Date: 20210817
  Transmission Date: 20211014
  Serious: Yes (Disabling)
  Sender: FDA-Public Use
  Company Number: US-TEVA-777646USA

PATIENT
  Age: 49 Year
  Sex: Female

DRUGS (35)
  1. DOCETAXEL SAGENT [Suspect]
     Active Substance: DOCETAXEL
     Indication: BREAST CANCER FEMALE
     Dosage: CYCLE 1, ONCE EVERY 21 DAYS
     Route: 042
     Dates: start: 20150205, end: 20150205
  2. DOCETAXEL SAGENT [Suspect]
     Active Substance: DOCETAXEL
     Dosage: CYCLE 4, ONCE EVERY 21 DAYS
     Route: 042
     Dates: start: 20150409, end: 20150409
  3. TRASTUZUMAB. [Suspect]
     Active Substance: TRASTUZUMAB
     Indication: BREAST CANCER FEMALE
     Dosage: CYCLE 1, ONCE EVERY 21 DAYS
     Route: 042
     Dates: start: 20150205, end: 20150205
  4. TRASTUZUMAB. [Suspect]
     Active Substance: TRASTUZUMAB
     Dosage: CYCLE 3, ONCE EVERY 21 DAYS
     Route: 042
     Dates: start: 20150319, end: 20150319
  5. PERTUZUMAB. [Suspect]
     Active Substance: PERTUZUMAB
     Dosage: CYCLE 2, ONCE EVERY 21 DAYS
     Route: 042
     Dates: start: 20150226, end: 20150226
  6. PERTUZUMAB. [Suspect]
     Active Substance: PERTUZUMAB
     Dosage: CYCLE 3, ONCE EVERY 21 DAYS
     Route: 042
     Dates: start: 20150319, end: 20150319
  7. VITAMIN D [Concomitant]
     Active Substance: VITAMIN D NOS
  8. PREMPRO [Concomitant]
     Active Substance: ESTROGENS, CONJUGATED\MEDROXYPROGESTERONE ACETATE
     Dates: end: 201501
  9. VALTREX [Concomitant]
     Active Substance: VALACYCLOVIR HYDROCHLORIDE
  10. ZINC. [Concomitant]
     Active Substance: ZINC
  11. DOCETAXEL SAGENT [Suspect]
     Active Substance: DOCETAXEL
     Dosage: CYCLE 3, ONCE EVERY 21 DAYS
     Route: 042
     Dates: start: 20150319, end: 20150319
  12. CARBOPLATIN. [Suspect]
     Active Substance: CARBOPLATIN
     Dosage: CYCLE 2, AUC=6, ONCE EVERY 21 DAYS
     Route: 042
     Dates: start: 20150226, end: 20150226
  13. CARBOPLATIN. [Suspect]
     Active Substance: CARBOPLATIN
     Dosage: CYCLE 5, AUC=6, ONCE EVERY 21 DAYS
     Route: 042
     Dates: start: 20150430, end: 20150430
  14. PERTUZUMAB. [Suspect]
     Active Substance: PERTUZUMAB
     Dosage: CYCLE 5, ONCE EVERY 21 DAYS
     Route: 042
     Dates: start: 20150430, end: 20150430
  15. PERTUZUMAB. [Suspect]
     Active Substance: PERTUZUMAB
     Dosage: CYCLE 6, ONCE EVERY 21 DAYS
     Route: 042
     Dates: start: 20150521, end: 20150521
  16. CARBOPLATIN. [Suspect]
     Active Substance: CARBOPLATIN
     Dosage: CYCLE 6, AUC=6, ONCE EVERY 21 DAYS
     Route: 042
     Dates: start: 20150521, end: 20150521
  17. PERTUZUMAB. [Suspect]
     Active Substance: PERTUZUMAB
     Dosage: CYCLE 4, ONCE EVERY 21 DAYS
     Route: 042
     Dates: start: 20150409, end: 20150409
  18. DOCETAXEL SAGENT [Suspect]
     Active Substance: DOCETAXEL
     Dosage: CYCLE 6, ONCE EVERY 21 DAYS
     Route: 042
     Dates: start: 20150521, end: 20150521
  19. VITAMIN B12 [Concomitant]
     Active Substance: CYANOCOBALAMIN
  20. BIOTIN [Concomitant]
     Active Substance: BIOTIN
  21. IMITREX [Concomitant]
     Active Substance: SUMATRIPTAN SUCCINATE
  22. DOCETAXEL SAGENT [Suspect]
     Active Substance: DOCETAXEL
     Dosage: CYCLE 2, ONCE EVERY 21 DAYS
     Route: 042
     Dates: start: 20150226, end: 20150226
  23. DOCETAXEL SAGENT [Suspect]
     Active Substance: DOCETAXEL
     Dosage: CYCLE 5, ONCE EVERY 21 DAYS
     Route: 042
     Dates: start: 20150430, end: 20150430
  24. CARBOPLATIN. [Suspect]
     Active Substance: CARBOPLATIN
     Indication: BREAST CANCER FEMALE
     Dosage: CYCLE 1, AUC=6, ONCE EVERY 21 DAYS
     Route: 042
     Dates: start: 20150205, end: 20150205
  25. CARBOPLATIN. [Suspect]
     Active Substance: CARBOPLATIN
     Dosage: CYCLE 3, AUC=6, ONCE EVERY 21 DAYS
     Route: 042
     Dates: start: 20150319, end: 20150319
  26. TRASTUZUMAB. [Suspect]
     Active Substance: TRASTUZUMAB
     Dosage: CYCLE 4, ONCE EVERY 21 DAYS
     Route: 042
     Dates: start: 20150409, end: 20150409
  27. LEVOTHYROXINE. [Concomitant]
     Active Substance: LEVOTHYROXINE
     Dosage: CONTINUING
     Dates: start: 2012
  28. IBUPROFEN. [Concomitant]
     Active Substance: IBUPROFEN
  29. CARBOPLATIN. [Suspect]
     Active Substance: CARBOPLATIN
     Dosage: CYCLE 4, AUC=6, ONCE EVERY 21 DAYS
     Route: 042
     Dates: start: 20150409, end: 20150409
  30. TRASTUZUMAB. [Suspect]
     Active Substance: TRASTUZUMAB
     Dosage: CYCLE 2, ONCE EVERY 21 DAYS
     Route: 042
     Dates: start: 20150226, end: 20150226
  31. WELLBUTRIN [Concomitant]
     Active Substance: BUPROPION HYDROCHLORIDE
     Dates: start: 201510
  32. NIACIN. [Concomitant]
     Active Substance: NIACIN
  33. TRASTUZUMAB. [Suspect]
     Active Substance: TRASTUZUMAB
     Dosage: CYCLE 5, ONCE EVERY 21 DAYS
     Route: 042
     Dates: start: 20150430, end: 20150430
  34. TRASTUZUMAB. [Suspect]
     Active Substance: TRASTUZUMAB
     Dosage: CYCLE 6, ONCE EVERY 21 DAYS
     Route: 042
     Dates: start: 20150521, end: 20150521
  35. PERTUZUMAB. [Suspect]
     Active Substance: PERTUZUMAB
     Indication: BREAST CANCER FEMALE
     Dosage: CYCLE 1, ONCE EVERY 21 DAYS
     Route: 042
     Dates: start: 20150205, end: 20150205

REACTIONS (14)
  - Fatigue [Not Recovered/Not Resolved]
  - Nausea [Recovered/Resolved]
  - Nail disorder [Unknown]
  - Madarosis [Not Recovered/Not Resolved]
  - Hair colour changes [Not Recovered/Not Resolved]
  - Toxicity to various agents [Recovered/Resolved]
  - Hair texture abnormal [Not Recovered/Not Resolved]
  - Temperature intolerance [Unknown]
  - Dizziness [Not Recovered/Not Resolved]
  - Diarrhoea [Recovering/Resolving]
  - Anaemia [Not Recovered/Not Resolved]
  - Alopecia areata [Not Recovered/Not Resolved]
  - Arthralgia [Recovered/Resolved]
  - Liver function test increased [Recovered/Resolved]

NARRATIVE: CASE EVENT DATE: 2015
